FAERS Safety Report 7776827-5 (Version None)
Quarter: 2011Q3

REPORT INFORMATION
  Report Type: 
  Country: None (occurrence: None)
  Receive Date: 20110923
  Receipt Date: 20110923
  Transmission Date: 20111222
  Serious: No
  Sender: FDA-Public Use
  Company Number: None

PATIENT
  Sex: Female
  Weight: 73.6 kg

DRUGS (2)
  1. SUBOXONE [Suspect]
     Indication: DRUG DEPENDENCE
     Dosage: 3 FILMS (6/1.5MG) DAILY SUBLINGUAL
     Route: 060
     Dates: start: 20110627, end: 20110823
  2. SUBOXONE [Suspect]
     Indication: DRUG DEPENDENCE
     Dosage: 1 FILM 8/2MG) DAILY SUBLINGUAL
     Route: 060
     Dates: start: 20110823

REACTIONS (7)
  - SWELLING [None]
  - SPEECH DISORDER [None]
  - LEUKOPLAKIA [None]
  - MUCOSAL INFLAMMATION [None]
  - REACTION TO DRUG EXCIPIENTS [None]
  - GLOSSITIS [None]
  - CHEMICAL INJURY [None]
